FAERS Safety Report 26166943 (Version 1)
Quarter: 2025Q4

REPORT INFORMATION
  Report Type: Spontaneous
  Country: US (occurrence: None)
  Receive Date: 20251217
  Receipt Date: 20251217
  Transmission Date: 20260118
  Serious: No
  Sender: UCB
  Company Number: US-UCBSA-2025063428

PATIENT
  Age: 52 Year
  Weight: 81.179 kg

DRUGS (7)
  1. BIMZELX [Suspect]
     Active Substance: BIMEKIZUMAB-BKZX
     Indication: Psoriatic arthropathy
     Dosage: 320 MILLIGRAM, EV 4 WEEKS
  2. BIMZELX [Suspect]
     Active Substance: BIMEKIZUMAB-BKZX
     Indication: Psoriasis
  3. ALFUZOSIN HYDROCHLORIDE [Concomitant]
     Active Substance: ALFUZOSIN HYDROCHLORIDE
     Indication: Product used for unknown indication
     Dosage: 10 MILLIGRAM, 24H
  4. FISH OIL 1000 MG CAPSULE [Concomitant]
     Indication: Product used for unknown indication
     Dosage: 1000 MILLIGRAM
  5. MULTIVITAMINS TABLET [Concomitant]
     Indication: Product used for unknown indication
     Dosage: UNK
  6. INDOMETHACIN 25 MG CAPSULE, [Concomitant]
     Indication: Product used for unknown indication
     Dosage: 25 MILLIGRAM
  7. TADALAFIL 10 MG TABLET [Concomitant]
     Indication: Product used for unknown indication
     Dosage: 10 MILLIGRAM

REACTIONS (1)
  - Drug ineffective [Unknown]
